FAERS Safety Report 6892566-7 (Version None)
Quarter: 2010Q3

REPORT INFORMATION
  Report Type: 
  Country: None (occurrence: None)
  Receive Date: 20100731
  Receipt Date: 20080708
  Transmission Date: 20110219
  Serious: No
  Sender: FDA-Public Use
  Company Number: US-PFIZER INC-2008038800

PATIENT
  Sex: Male

DRUGS (2)
  1. DEPO-MEDROL [Suspect]
     Indication: ARTHRITIS
     Dates: start: 20080409
  2. LIDOCAINE [Concomitant]

REACTIONS (2)
  - PAIN [None]
  - SWELLING [None]
